FAERS Safety Report 9037800 (Version 2)
Quarter: 2013Q1

REPORT INFORMATION
  Report Type: Report from Study
  Country: US (occurrence: US)
  Receive Date: 20130129
  Receipt Date: 20130205
  Transmission Date: 20140127
  Serious: Yes (Hospitalization)
  Sender: FDA-Public Use
  Company Number: US-GLENMARK GENERICS INC.-GGEL20120400448

PATIENT
  Sex: Male
  Weight: 88 kg

DRUGS (3)
  1. CALCIPOTRIENE [Suspect]
     Indication: PSORIASIS
     Dosage: UNK, BID
     Route: 061
     Dates: start: 20120314
  2. DOVONEX [Suspect]
     Indication: PSORIASIS
     Dosage: UNK, BID
     Route: 061
     Dates: start: 20120314
  3. BLINDED PLACEBO [Suspect]
     Indication: PSORIASIS
     Dosage: UNK, BID
     Route: 061
     Dates: start: 20120314

REACTIONS (1)
  - Vitamin B12 decreased [Unknown]
